FAERS Safety Report 5381432-4 (Version None)
Quarter: 2007Q3

REPORT INFORMATION
  Report Type: 
  Country: None (occurrence: None)
  Receive Date: 20070709
  Receipt Date: 20070628
  Transmission Date: 20080115
  Serious: Yes (Other)
  Sender: FDA-Public Use
  Company Number: US-JNJFOC-20070700216

PATIENT
  Sex: Female
  Weight: 63.5 kg

DRUGS (7)
  1. LEVAQUIN [Suspect]
     Indication: BRONCHITIS
     Route: 048
  2. SYNTHROID [Concomitant]
     Indication: HYPOTHYROIDISM
     Route: 048
  3. HYDROCHLOROTHIAZIDE [Concomitant]
     Indication: HYPERTENSION
     Route: 048
  4. INDERAL [Concomitant]
     Indication: HYPERTENSION
     Route: 048
  5. KLONOPIN [Concomitant]
     Indication: ANXIETY
     Route: 065
  6. CYMBALTA [Concomitant]
     Indication: DEPRESSION
     Route: 065
  7. XPECT [Concomitant]
     Indication: COUGH
     Route: 065

REACTIONS (5)
  - AMNESIA [None]
  - ANXIETY [None]
  - ASTHENIA [None]
  - DIARRHOEA [None]
  - MUSCLE SPASMS [None]
